FAERS Safety Report 13508385 (Version 1)
Quarter: 2017Q2

REPORT INFORMATION
  Report Type: Spontaneous
  Country: US (occurrence: US)
  Receive Date: 20170503
  Receipt Date: 20170503
  Transmission Date: 20170830
  Serious: No
  Sender: FDA-Public Use
  Company Number: US-MALLINCKRODT-T201605838

PATIENT
  Age: 33 Year
  Sex: Male
  Weight: 73 kg

DRUGS (1)
  1. NALTREXONE [Suspect]
     Active Substance: NALTREXONE
     Indication: DRUG USE DISORDER
     Dosage: 25 MG (0.5 TABLET), QD
     Route: 048
     Dates: start: 20161013

REACTIONS (2)
  - Incorrect dosage administered [Not Recovered/Not Resolved]
  - Opiates positive [Not Recovered/Not Resolved]

NARRATIVE: CASE EVENT DATE: 20161013
